FAERS Safety Report 5573939-1 (Version None)
Quarter: 2007Q4

REPORT INFORMATION
  Report Type: 
  Country: None (occurrence: None)
  Receive Date: 20071220
  Receipt Date: 20071204
  Transmission Date: 20080405
  Serious: Yes (Death)
  Sender: FDA-Public Use
  Company Number: 2007US000982

PATIENT
  Age: 70 Year
  Sex: Male
  Weight: 136.1 kg

DRUGS (1)
  1. AMEVIVE [Suspect]
     Indication: PSORIASIS
     Dosage: 15 MG, WEEKLY, INTRAMUSCULAR
     Route: 030
     Dates: start: 20041018, end: 20050110

REACTIONS (2)
  - PNEUMONIA ASPIRATION [None]
  - SEPTIC SHOCK [None]
